FAERS Safety Report 8523070-8 (Version None)
Quarter: 2012Q3

REPORT INFORMATION
  Report Type: 
  Country: None (occurrence: None)
  Receive Date: 20120713
  Receipt Date: 20120713
  Transmission Date: 20120928
  Serious: Yes (Hospitalization, Disabling, Other)
  Sender: FDA-Public Use
  Company Number: None

PATIENT
  Sex: Female

DRUGS (1)
  1. BUTRANS [Suspect]
     Indication: PAIN
     Dosage: 10MG WKLY TRANSDERMAL
     Route: 062
     Dates: start: 20120201, end: 20120710

REACTIONS (2)
  - APPLICATION SITE REACTION [None]
  - PRODUCT MEASURED POTENCY ISSUE [None]
